FAERS Safety Report 13970058 (Version 1)
Quarter: 2017Q3

REPORT INFORMATION
  Report Type: Spontaneous
  Country: US (occurrence: US)
  Receive Date: 20170914
  Receipt Date: 20170914
  Transmission Date: 20171128
  Serious: No
  Sender: FDA-Public Use
  Company Number: US-ASTELLAS-2017US000625

PATIENT
  Age: 76 Year
  Sex: Male

DRUGS (1)
  1. XTANDI [Suspect]
     Active Substance: ENZALUTAMIDE
     Indication: PROSTATE CANCER
     Route: 048
     Dates: start: 20161031

REACTIONS (6)
  - Memory impairment [Unknown]
  - Vision blurred [Unknown]
  - Dizziness [Unknown]
  - Decreased appetite [Unknown]
  - Confusional state [Unknown]
  - Nausea [Unknown]
